FAERS Safety Report 16688312 (Version 1)
Quarter: 2019Q3

REPORT INFORMATION
  Report Type: Spontaneous
  Country: DE (occurrence: DE)
  Receive Date: 20190809
  Receipt Date: 20190809
  Transmission Date: 20191004
  Serious: Yes (Death)
  Sender: FDA-Public Use
  Company Number: DE-PFIZER INC-2019340218

PATIENT
  Sex: Female

DRUGS (1)
  1. LORVIQUA (LORLATINIB) [Suspect]
     Active Substance: LORLATINIB

REACTIONS (1)
  - Death [Fatal]
